FAERS Safety Report 21079179 (Version 2)
Quarter: 2022Q3

REPORT INFORMATION
  Report Type: Report from Study
  Country: US (occurrence: US)
  Receive Date: 20220714
  Receipt Date: 20220721
  Transmission Date: 20221026
  Serious: No
  Sender: FDA-Public Use
  Company Number: US-BIOVITRUM-2022US08599

PATIENT
  Age: 29 Year
  Sex: Male

DRUGS (1)
  1. KINERET [Suspect]
     Active Substance: ANAKINRA
     Indication: Pericarditis
     Dates: start: 20220614

REACTIONS (6)
  - Sinusitis [Unknown]
  - Influenza [Unknown]
  - Adverse drug reaction [Unknown]
  - Injection site pain [Unknown]
  - Injection site warmth [Unknown]
  - Off label use [Unknown]

NARRATIVE: CASE EVENT DATE: 20220614
